FAERS Safety Report 24614603 (Version 3)
Quarter: 2025Q1

REPORT INFORMATION
  Report Type: Spontaneous
  Country: DE (occurrence: DE)
  Receive Date: 20241113
  Receipt Date: 20250124
  Transmission Date: 20250409
  Serious: No
  Sender: ABBVIE
  Company Number: DE-ABBVIE-5996921

PATIENT
  Sex: Female

DRUGS (1)
  1. FOSCARBIDOPA\FOSLEVODOPA [Suspect]
     Active Substance: FOSCARBIDOPA\FOSLEVODOPA
     Indication: Parkinson^s disease
     Route: 058

REACTIONS (3)
  - Imperception [Unknown]
  - On and off phenomenon [Not Recovered/Not Resolved]
  - Infusion site pain [Unknown]
